FAERS Safety Report 22354100 (Version 1)
Quarter: 2023Q2

REPORT INFORMATION
  Report Type: Spontaneous
  Country: JP (occurrence: None)
  Receive Date: 20230523
  Receipt Date: 20230523
  Transmission Date: 20230722
  Serious: Yes (Hospitalization)
  Sender: FDA-Public Use
  Company Number: 2023A040962

PATIENT
  Age: 86 Year
  Sex: Male
  Weight: 52 kg

DRUGS (8)
  1. DAPAGLIFLOZIN [Suspect]
     Active Substance: DAPAGLIFLOZIN
     Indication: Chronic kidney disease
     Dosage: AFTER BREAKFAST, PRESCRIBED AT THE REPORTING HOSPITAL
     Route: 048
     Dates: start: 202110, end: 20230209
  2. VADADUSTAT [Concomitant]
     Active Substance: VADADUSTAT
     Dosage: DOSE UNKNOWN
     Route: 065
  3. METHYLCOBALAMIN [Concomitant]
     Active Substance: METHYLCOBALAMIN
     Dosage: AFTER BREAKFAST, LUNCH, AND DINNER, PRESCRIBED AT THE REPORTING HOSPITAL
     Route: 048
  4. VONOPRAZAN FUMARATE [Concomitant]
     Active Substance: VONOPRAZAN FUMARATE
     Dosage: AFTER BREAKFAST, LUNCH, AND DINNER, PRESCRIBED AT THE REPORTING HOSPITAL
     Route: 048
  5. ELOBIXIBAT [Concomitant]
     Active Substance: ELOBIXIBAT
     Dosage: BEFORE BREAKFAST, PRESCRIBED AT THE REPORTING HOSPITAL
     Route: 048
  6. MAGNESIUM OXIDE [Concomitant]
     Active Substance: MAGNESIUM OXIDE
     Dosage: AFTER BREAKFAST, LUNCH, AND DINNER, PRESCRIBED AT THE REPORTING HOSPITAL
     Route: 048
  7. ACETAMINOPHEN\TRAMADOL HYDROCHLORIDE [Concomitant]
     Active Substance: ACETAMINOPHEN\TRAMADOL HYDROCHLORIDE
     Dosage: AFTER BREAKFAST AND DINNER, PRESCRIBED AT THE REPORTING HOSPITAL
     Route: 048
  8. SENNOSIDES [Concomitant]
     Active Substance: SENNOSIDES
     Dosage: BEFORE BEDTIME, PRESCRIBED AT THE REPORTING HOSPITAL
     Route: 048

REACTIONS (1)
  - Hyponatraemia [Recovered/Resolved]

NARRATIVE: CASE EVENT DATE: 20230209
